FAERS Safety Report 18484110 (Version 3)
Quarter: 2021Q4

REPORT INFORMATION
  Report Type: Spontaneous
  Country: US (occurrence: US)
  Receive Date: 20201109
  Receipt Date: 20211110
  Transmission Date: 20220304
  Serious: Yes (Hospitalization)
  Sender: FDA-Public Use
  Company Number: US-SA-2020SA313456

PATIENT
  Age: 52 Year
  Sex: Female

DRUGS (1)
  1. KEVZARA [Suspect]
     Active Substance: SARILUMAB
     Indication: Rheumatoid arthritis
     Dosage: 200 MG, QOW
     Route: 058
     Dates: start: 202010

REACTIONS (3)
  - Road traffic accident [Unknown]
  - Concussion [Unknown]
  - Headache [Unknown]

NARRATIVE: CASE EVENT DATE: 20210920
